FAERS Safety Report 8145142-2 (Version None)
Quarter: 2012Q1

REPORT INFORMATION
  Report Type: 
  Country: None (occurrence: None)
  Receive Date: 20120217
  Receipt Date: 20120214
  Transmission Date: 20120608
  Serious: Yes (Death, Hospitalization, Other)
  Sender: FDA-Public Use
  Company Number: PHHY2012FR012934

PATIENT
  Age: 68 Year
  Sex: Male

DRUGS (1)
  1. TASIGNA [Suspect]
     Indication: CHRONIC MYELOID LEUKAEMIA

REACTIONS (8)
  - HYPERCALCAEMIA OF MALIGNANCY [None]
  - ANGIOSARCOMA [None]
  - CONFUSIONAL STATE [None]
  - NECROSIS [None]
  - SKIN LESION [None]
  - GENERAL PHYSICAL CONDITION ABNORMAL [None]
  - METASTASES TO BONE [None]
  - SKIN ULCER [None]
